FAERS Safety Report 23189335 (Version 2)
Quarter: 2023Q4

REPORT INFORMATION
  Report Type: Spontaneous
  Country: US (occurrence: US)
  Receive Date: 20231116
  Receipt Date: 20231124
  Transmission Date: 20240109
  Serious: Yes (Hospitalization)
  Sender: FDA-Public Use
  Company Number: US-TEVA-2023-US-2944163

PATIENT
  Age: 42 Year
  Sex: Female
  Weight: 64.2 kg

DRUGS (70)
  1. OXYCODONE [Suspect]
     Active Substance: OXYCODONE
     Indication: Pain
     Route: 065
  2. GABAPENTIN [Suspect]
     Active Substance: GABAPENTIN
     Indication: Pain
     Dosage: DAY 1, 2400 MG
     Route: 048
  3. GABAPENTIN [Suspect]
     Active Substance: GABAPENTIN
     Dosage: DAY 3, 1600 MG
     Route: 048
  4. GABAPENTIN [Suspect]
     Active Substance: GABAPENTIN
     Dosage: DAY 4, 1800 MG
     Route: 048
  5. GABAPENTIN [Suspect]
     Active Substance: GABAPENTIN
     Dosage: DAY 10, 1800 MG
     Route: 048
  6. GABAPENTIN [Suspect]
     Active Substance: GABAPENTIN
     Dosage: DAY 12, 1200 MG
     Route: 048
  7. GABAPENTIN [Suspect]
     Active Substance: GABAPENTIN
     Dosage: DAY 16, 1800 MG
     Route: 048
  8. GABAPENTIN [Suspect]
     Active Substance: GABAPENTIN
     Dosage: DAY 20, 1800 MG
     Route: 048
  9. GABAPENTIN [Suspect]
     Active Substance: GABAPENTIN
     Dosage: DAY 25, 1800 MG
     Route: 048
  10. GABAPENTIN [Suspect]
     Active Substance: GABAPENTIN
     Dosage: POD 1, 1200 MG
     Route: 048
  11. GABAPENTIN [Suspect]
     Active Substance: GABAPENTIN
     Dosage: POD 2, 1800 MG
     Route: 048
  12. GABAPENTIN [Suspect]
     Active Substance: GABAPENTIN
     Dosage: POD 3, 1200 MG
     Route: 048
  13. BACLOFEN [Suspect]
     Active Substance: BACLOFEN
     Indication: Pain
     Dosage: DAY 1, 15 MG
     Route: 048
  14. BACLOFEN [Suspect]
     Active Substance: BACLOFEN
     Dosage: DAY 3, 10 MG
     Route: 048
  15. BACLOFEN [Suspect]
     Active Substance: BACLOFEN
     Dosage: DAY 4, 15 MG
     Route: 048
  16. MORPHINE [Suspect]
     Active Substance: MORPHINE
     Indication: Pain
     Dosage: DAY 1; TOTAL MORPHINE MILLIEQUIVALENTS, 492 MILLIEQUIVALENTS
     Route: 048
  17. MORPHINE [Suspect]
     Active Substance: MORPHINE
     Dosage: DAY 3; TOTAL MORPHINE MILLIEQUIVALENTS, 530 MILLIEQUIVALENTS
     Route: 048
  18. MORPHINE [Suspect]
     Active Substance: MORPHINE
     Dosage: DAY 4; TOTAL MORPHINE MILLIEQUIVALENTS, 380 MILLIEQUIVALENTS
     Route: 048
  19. MORPHINE [Suspect]
     Active Substance: MORPHINE
     Dosage: DAY 10; TOTAL MORPHINE MILLIEQUIVALENTS, 314 MILLIEQUIVALENTS
     Route: 048
  20. MORPHINE [Suspect]
     Active Substance: MORPHINE
     Dosage: DAY 12; TOTAL MORPHINE MILLIEQUIVALENTS, 204 MILLIEQUIVALENTS
     Route: 048
  21. MORPHINE [Suspect]
     Active Substance: MORPHINE
     Dosage: DAY 16; TOTAL MORPHINE MILLIEQUIVALENTS, 6 MILLIEQUIVALENTS
     Route: 048
  22. MORPHINE [Suspect]
     Active Substance: MORPHINE
     Dosage: DAY 20; TOTAL MORPHINE MILLIEQUIVALENTS, 42 MILLIEQUIVALENTS
     Route: 048
  23. MORPHINE [Suspect]
     Active Substance: MORPHINE
     Dosage: DAY 25; TOTAL MORPHINE MILLIEQUIVALENTS, 24 MILLIEQUIVALENTS
     Route: 048
  24. MORPHINE [Suspect]
     Active Substance: MORPHINE
     Dosage: POD 1; TOTAL MORPHINE MILLIEQUIVALENTS, 24 MILLIEQUIVALENTS
     Route: 048
  25. MORPHINE [Suspect]
     Active Substance: MORPHINE
     Dosage: POD 2; TOTAL MORPHINE MILLIEQUIVALENTS, 3 MILLIEQUIVALENTS
     Route: 048
  26. MORPHINE [Suspect]
     Active Substance: MORPHINE
     Dosage: POD 3; TOTAL MORPHINE MILLIEQUIVALENTS, 13 MILLIEQUIVALENTS
     Route: 048
  27. MORPHINE [Suspect]
     Active Substance: MORPHINE
     Dosage: DAY 1; TOTAL MORPHINE MILLIEQUIVALENTS, 492 MILLIEQUIVALENTS
     Route: 037
  28. MORPHINE [Suspect]
     Active Substance: MORPHINE
     Dosage: DAY 3; TOTAL MORPHINE MILLIEQUIVALENTS, 530 MILLIEQUIVALENTS
     Route: 037
  29. MORPHINE [Suspect]
     Active Substance: MORPHINE
     Dosage: DAY 4; TOTAL MORPHINE MILLIEQUIVALENTS, 380 MILLIEQUIVALENTS
     Route: 037
  30. MORPHINE [Suspect]
     Active Substance: MORPHINE
     Dosage: DAY 10; TOTAL MORPHINE MILLIEQUIVALENTS, 314 MILLIEQUIVALENTS
     Route: 037
  31. MORPHINE [Suspect]
     Active Substance: MORPHINE
     Dosage: DAY 12; TOTAL MORPHINE MILLIEQUIVALENTS, 204 MILLIEQUIVALENTS
     Route: 037
  32. MORPHINE [Suspect]
     Active Substance: MORPHINE
     Dosage: DAY 16; TOTAL MORPHINE MILLIEQUIVALENTS, 6 MILLIEQUIVALENTS
     Route: 037
  33. MORPHINE [Suspect]
     Active Substance: MORPHINE
     Dosage: DAY 20; TOTAL MORPHINE MILLIEQUIVALENTS, 42 MILLIEQUIVALENTS
     Route: 037
  34. MORPHINE [Suspect]
     Active Substance: MORPHINE
     Dosage: DAY 25; TOTAL MORPHINE MILLIEQUIVALENTS, 24 MILLIEQUIVALENTS
     Route: 037
  35. MORPHINE [Suspect]
     Active Substance: MORPHINE
     Dosage: POD 1; TOTAL MORPHINE MILLIEQUIVALENTS, 24 MILLIEQUIVALENTS
     Route: 037
  36. MORPHINE [Suspect]
     Active Substance: MORPHINE
     Dosage: POD 2; TOTAL MORPHINE MILLIEQUIVALENTS, 3 MILLIEQUIVALENTS
     Route: 037
  37. MORPHINE [Suspect]
     Active Substance: MORPHINE
     Dosage: POD 3; TOTAL MORPHINE MILLIEQUIVALENTS, 13 MILLIEQUIVALENTS
     Route: 037
  38. HYDROMORPHONE [Suspect]
     Active Substance: HYDROMORPHONE
     Indication: Pain
     Route: 037
  39. METHADONE [Suspect]
     Active Substance: METHADONE HYDROCHLORIDE
     Indication: Pain
     Dosage: DAY 1, 10 MG
     Route: 048
  40. METHADONE [Suspect]
     Active Substance: METHADONE HYDROCHLORIDE
     Dosage: DAY 3, 20 MG
     Route: 048
  41. METHADONE [Suspect]
     Active Substance: METHADONE HYDROCHLORIDE
     Dosage: DAY 4, 40 MG
     Route: 048
  42. METHADONE [Suspect]
     Active Substance: METHADONE HYDROCHLORIDE
     Dosage: DAY 10, 50 MG
     Route: 048
  43. METHADONE [Suspect]
     Active Substance: METHADONE HYDROCHLORIDE
     Dosage: DAY 12, 30 MG
     Route: 048
  44. METHADONE [Suspect]
     Active Substance: METHADONE HYDROCHLORIDE
     Dosage: DAY 16, 30 MG
     Route: 048
  45. METHADONE [Suspect]
     Active Substance: METHADONE HYDROCHLORIDE
     Dosage: POD 1, 10 MG
     Route: 048
  46. METHADONE [Suspect]
     Active Substance: METHADONE HYDROCHLORIDE
     Dosage: POD 2, 5 MG
     Route: 048
  47. METHADONE [Suspect]
     Active Substance: METHADONE HYDROCHLORIDE
     Dosage: DAY 25, 20 MG
     Route: 042
  48. METHADONE [Suspect]
     Active Substance: METHADONE HYDROCHLORIDE
     Dosage: POD 1, 10 MG
     Route: 042
  49. BUPIVACAINE [Suspect]
     Active Substance: BUPIVACAINE
     Indication: Pain
     Dosage: DAY 1, 4 MG
     Route: 037
  50. BUPIVACAINE [Suspect]
     Active Substance: BUPIVACAINE
     Dosage: DAY 3, 4 MG
     Route: 037
  51. BUPIVACAINE [Suspect]
     Active Substance: BUPIVACAINE
     Dosage: DAY 4, 4 MG
     Route: 037
  52. BUPIVACAINE [Suspect]
     Active Substance: BUPIVACAINE
     Dosage: DAY 10, 4 MG
     Route: 037
  53. BUPIVACAINE [Suspect]
     Active Substance: BUPIVACAINE
     Dosage: DAY 12, 4 MG
     Route: 037
  54. BUPIVACAINE [Suspect]
     Active Substance: BUPIVACAINE
     Dosage: DAY 16, 4 MG
     Route: 037
  55. BUPIVACAINE [Suspect]
     Active Substance: BUPIVACAINE
     Dosage: DAY 20, 4 MG
     Route: 037
  56. BUPIVACAINE [Suspect]
     Active Substance: BUPIVACAINE
     Dosage: DAY 25, 4 MG
     Route: 037
  57. BUPIVACAINE [Suspect]
     Active Substance: BUPIVACAINE
     Dosage: POD 1, 2 MG
     Route: 037
  58. BUPIVACAINE [Suspect]
     Active Substance: BUPIVACAINE
     Dosage: POD 2, 1 MG
     Route: 037
  59. BUPIVACAINE [Suspect]
     Active Substance: BUPIVACAINE
     Dosage: POD 3, 1 MG
     Route: 037
  60. TYLENOL [Suspect]
     Active Substance: ACETAMINOPHEN
     Indication: Pain
     Dosage: DAY 20, 500 MG
     Route: 048
  61. TYLENOL [Suspect]
     Active Substance: ACETAMINOPHEN
     Dosage: POD 3, 500 MG
     Route: 048
  62. DOXORUBICIN [Concomitant]
     Active Substance: DOXORUBICIN
     Indication: Anticoagulant therapy
     Route: 065
  63. ZINECARD [Concomitant]
     Active Substance: DEXRAZOXANE HYDROCHLORIDE
     Indication: Anticoagulant therapy
     Route: 065
  64. SERTRALINE [Concomitant]
     Active Substance: SERTRALINE HYDROCHLORIDE
     Indication: Depression
     Route: 065
  65. OLANZAPINE [Concomitant]
     Active Substance: OLANZAPINE
     Indication: Depression
     Route: 065
  66. KETAMINE [Concomitant]
     Active Substance: KETAMINE
     Indication: Pain
     Dosage: DAY 4, 491 MG
     Route: 041
  67. KETAMINE [Concomitant]
     Active Substance: KETAMINE
     Dosage: DAY 10, 491 MG
     Route: 041
  68. KETAMINE [Concomitant]
     Active Substance: KETAMINE
     Dosage: DAY 12, 818 MG
     Route: 041
  69. KETAMINE [Concomitant]
     Active Substance: KETAMINE
     Dosage: DAY 16, 818 MG
     Route: 041
  70. KETAMINE [Concomitant]
     Active Substance: KETAMINE
     Dosage: DAY 20, 409 MG
     Route: 041

REACTIONS (2)
  - Drug ineffective [Unknown]
  - Lethargy [Unknown]
